FAERS Safety Report 24088657 (Version 1)
Quarter: 2024Q3

REPORT INFORMATION
  Report Type: Report from Study
  Country: US (occurrence: US)
  Receive Date: 20240715
  Receipt Date: 20240715
  Transmission Date: 20241017
  Serious: Yes (Death, Hospitalization, Other)
  Sender: GILEAD
  Company Number: US-GILEAD-2024-0678030

PATIENT
  Age: 61 Year
  Sex: Male

DRUGS (4)
  1. AMBRISENTAN [Suspect]
     Active Substance: AMBRISENTAN
     Indication: Pulmonary arterial hypertension
     Dosage: 10 MG, QD
     Route: 065
     Dates: start: 202405
  2. ORENITRAM [Suspect]
     Active Substance: TREPROSTINIL
     Indication: Pulmonary arterial hypertension
     Dosage: 10 MG, TID
     Route: 065
     Dates: start: 202210
  3. ORENITRAM [Suspect]
     Active Substance: TREPROSTINIL
     Dosage: 0.125 MG, TID
     Route: 065
     Dates: start: 202210
  4. ORENITRAM [Suspect]
     Active Substance: TREPROSTINIL
     Dosage: 10.125 MG, TID
     Route: 065
     Dates: start: 202210

REACTIONS (2)
  - Death [Fatal]
  - Gastrointestinal disorder [Not Recovered/Not Resolved]
